FAERS Safety Report 6755627-9 (Version None)
Quarter: 2010Q2

REPORT INFORMATION
  Report Type: 
  Country: None (occurrence: None)
  Receive Date: 20100602
  Receipt Date: 20100520
  Transmission Date: 20101027
  Serious: Yes (Hospitalization)
  Sender: FDA-Public Use
  Company Number: WAES 1005USA03746

PATIENT
  Sex: Female

DRUGS (7)
  1. FOSAMAX [Suspect]
     Indication: OSTEOPOROSIS
     Dosage: 35 MG/WKY/PO; 35 MG/2XM/PO
     Route: 048
     Dates: start: 20080128, end: 20090322
  2. FOSAMAX [Suspect]
     Indication: OSTEOPOROSIS
     Dosage: 35 MG/WKY/PO; 35 MG/2XM/PO
     Route: 048
     Dates: start: 20090323, end: 20090712
  3. FOLIAMIN [Concomitant]
  4. METOLATE [Concomitant]
  5. MOBIC [Concomitant]
  6. MUCOSTA [Concomitant]
  7. RIDAURA [Concomitant]

REACTIONS (3)
  - FALL [None]
  - FRACTURE [None]
  - SPORTS INJURY [None]
